FAERS Safety Report 9096610 (Version 1)
Quarter: 2013Q1

REPORT INFORMATION
  Report Type: Spontaneous
  Country: GR (occurrence: None)
  Receive Date: 20130125
  Receipt Date: 20130125
  Transmission Date: 20140127
  Serious: Yes (Hospitalization)
  Sender: FDA-Public Use
  Company Number: INT_00178_2013

PATIENT
  Age: 25 Year
  Sex: Male

DRUGS (11)
  1. CEFEPIME  (CEFEPIME) [Suspect]
     Indication: NOSOCOMIAL INFECTION
     Dosage: (2 G TID,   INFUSION,  INTRAVENOUS  (NOT OTHERWISE SPECIFIED))?(UNKNOWN)
     Route: 042
  2. ATENOLOL [Concomitant]
  3. CITALOPRAM [Concomitant]
  4. LORAZEPAM [Concomitant]
  5. MICONAZOLE [Concomitant]
  6. OMEPRAZOLE [Concomitant]
  7. PREGABALIN [Concomitant]
  8. RISPERIDONE [Concomitant]
  9. TINZAPARIN [Concomitant]
  10. VENLAFAXINE [Concomitant]
  11. VANCOMYCIN [Concomitant]

REACTIONS (1)
  - Red man syndrome [None]
